FAERS Safety Report 24105454 (Version 7)
Quarter: 2024Q3

REPORT INFORMATION
  Report Type: Spontaneous
  Country: BE (occurrence: BE)
  Receive Date: 20240717
  Receipt Date: 20240924
  Transmission Date: 20241017
  Serious: Yes (Death, Hospitalization, Other)
  Sender: AUROBINDO
  Company Number: BE-DSJP-DSE-2024-135203

PATIENT
  Age: 85 Year
  Sex: Male

DRUGS (29)
  1. TAMSULOSIN [Suspect]
     Active Substance: TAMSULOSIN
     Indication: Benign prostatic hyperplasia
     Dosage: 0.4 MILLIGRAM, ONCE A DAY
     Route: 048
     Dates: start: 20240701
  2. BUMETANIDE [Suspect]
     Active Substance: BUMETANIDE
     Indication: Cardiac failure
     Dosage: 1 MILLIGRAM, ONCE A DAY
     Route: 048
     Dates: start: 20230927
  3. BUMETANIDE [Suspect]
     Active Substance: BUMETANIDE
     Dosage: 1 MILLIGRAM, ONCE A DAY
     Route: 048
     Dates: start: 20240621
  4. BUMETANIDE [Suspect]
     Active Substance: BUMETANIDE
     Dosage: 2 MILLIGRAM, ONCE A DAY
     Route: 042
     Dates: start: 20240701, end: 20240701
  5. DAPAGLIFLOZIN [Suspect]
     Active Substance: DAPAGLIFLOZIN
     Indication: Cardiac failure
     Dosage: 10 MILLIGRAM, ONCE A DAY
     Route: 048
     Dates: start: 20231006, end: 20240618
  6. DAPAGLIFLOZIN [Suspect]
     Active Substance: DAPAGLIFLOZIN
     Dosage: 10 MILLIGRAM, ONCE A DAY
     Route: 048
     Dates: start: 20240629, end: 20240702
  7. EDOXABAN TOSYLATE [Suspect]
     Active Substance: EDOXABAN TOSYLATE
     Indication: Thrombosis
     Dosage: 30 MILLIGRAM, ONCE A DAY
     Route: 048
     Dates: start: 20240621, end: 20240702
  8. EDOXABAN TOSYLATE [Suspect]
     Active Substance: EDOXABAN TOSYLATE
     Indication: Cardiac amyloidosis
     Dosage: 800 MILLIGRAM, ONCE A DAY
     Route: 048
     Dates: start: 20220816, end: 20240423
  9. ENTRESTO [Suspect]
     Active Substance: SACUBITRIL\VALSARTAN
     Indication: Cardiac failure
     Dosage: 0.5 DOSAGE FORM, TWO TIMES A DAY (0.5 DF, BID; 24/26 MG 0.5 TABLET TWICE DAILY (BID) PO)
     Route: 048
     Dates: start: 20230522, end: 20231004
  10. SPIRONOLACTONE [Suspect]
     Active Substance: SPIRONOLACTONE
     Indication: Cardiac failure
     Dosage: 25 MILLIGRAM, ONCE A DAY
     Route: 048
     Dates: start: 20231004
  11. ACORAMIDIS [Concomitant]
     Active Substance: ACORAMIDIS
     Indication: Cardiac amyloidosis
     Dosage: 800 MILLIGRAM, TWO TIMES A DAY
     Route: 048
     Dates: start: 20220816, end: 20240623
  12. ALDACTONE [Concomitant]
     Active Substance: SPIRONOLACTONE
     Indication: Cardiac failure acute
     Dosage: 25 MILLIGRAM, FOUR TIMES/DAY
     Route: 048
  13. ALDACTONE [Concomitant]
     Active Substance: SPIRONOLACTONE
     Dosage: 200 MILLIGRAM, ONCE A DAY
     Route: 042
     Dates: start: 20240630, end: 20240630
  14. BISOPROLOL [Concomitant]
     Active Substance: BISOPROLOL\BISOPROLOL FUMARATE
     Indication: Hypertension
     Dosage: 2.5 MILLIGRAM, ONCE A DAY
     Route: 048
     Dates: start: 20230426
  15. BISOPROLOL [Concomitant]
     Active Substance: BISOPROLOL\BISOPROLOL FUMARATE
     Dosage: 2.5 MILLIGRAM, ONCE A DAY
     Route: 048
     Dates: start: 20240629
  16. CORDARONE [Concomitant]
     Active Substance: AMIODARONE HYDROCHLORIDE
     Indication: Atrial fibrillation
     Dosage: 200 MILLIGRAM, FOUR TIMES/DAY
     Route: 048
     Dates: start: 20230309
  17. MORPHINE [Concomitant]
     Active Substance: MORPHINE
     Indication: Product used for unknown indication
     Dosage: 5 MILLIGRAM
     Route: 058
     Dates: start: 20230701, end: 20230703
  18. MORPHINE [Concomitant]
     Active Substance: MORPHINE
     Dosage: 5 MILLIGRAM
     Route: 058
     Dates: start: 20230701
  19. Pantomed [Concomitant]
     Indication: Gastric ulcer
     Dosage: 40 MILLIGRAM, ONCE A DAY
     Route: 048
  20. ACETAMINOPHEN [Concomitant]
     Active Substance: ACETAMINOPHEN
     Indication: Product used for unknown indication
     Dosage: 500 MILLIGRAM, ONCE A DAY
     Route: 048
     Dates: start: 20240624, end: 20240624
  21. ACETAMINOPHEN [Concomitant]
     Active Substance: ACETAMINOPHEN
     Dosage: 1 GRAM, AS NECESSARY
     Route: 042
     Dates: start: 20240630
  22. SCOPOLAMINE HYDROBROMIDE [Concomitant]
     Active Substance: SCOPOLAMINE HYDROBROMIDE
     Indication: Product used for unknown indication
     Dosage: 7.5 MILLILITER
     Route: 058
     Dates: start: 20240703
  23. PIPERACILLIN SODIUM\TAZOBACTAM SODIUM [Concomitant]
     Active Substance: PIPERACILLIN SODIUM\TAZOBACTAM SODIUM
     Indication: Pneumonia
     Dosage: 4 GRAM, FOUR TIMES/DAY
     Route: 042
     Dates: start: 20240625, end: 20240703
  24. SIMVASTATIN [Concomitant]
     Active Substance: SIMVASTATIN
     Indication: Hypercholesterolaemia
     Dosage: 20 MILLIGRAM, FOUR TIMES/DAY
     Route: 048
  25. ULTRA K [Concomitant]
     Indication: Product used for unknown indication
     Dosage: 15 MILLILITER, TWO TIMES A DAY
     Route: 048
     Dates: start: 20240629
  26. ENOXAPARIN SODIUM [Concomitant]
     Active Substance: ENOXAPARIN SODIUM
     Indication: Thrombosis
     Dosage: 40 MILLIGRAM, FOUR TIMES/DAY (40 MG, Q6H)
     Route: 058
     Dates: start: 20231004
  27. SODIUM BICARBONATE [Concomitant]
     Active Substance: SODIUM BICARBONATE
     Indication: Prophylaxis against dehydration
     Dosage: 1 GRAM, 3 TIMES A DAY
     Route: 048
     Dates: start: 20230920
  28. ALFACALCIDOL [Concomitant]
     Active Substance: ALFACALCIDOL
     Indication: Vitamin D deficiency
     Dosage: 0.25 MICROGRAM, FOUR TIMES/DAY (0.25 ?G, 4 TIMES DAILY (0.25 UG QD PO))
     Route: 048
  29. FENOTEROL HYDROBROMIDE [Concomitant]
     Active Substance: FENOTEROL HYDROBROMIDE
     Indication: Pneumonia
     Dosage: UNK, 4 TIMES DAILY ((50/20 UG PER DOSE (0.1 UNIT) FOUR TIMES DAILY (QID))

REACTIONS (6)
  - Pneumonia [Fatal]
  - Cardiac failure acute [Fatal]
  - Cardiac failure congestive [Fatal]
  - Liver function test abnormal [Unknown]
  - Acute kidney injury [Unknown]
  - Haematuria [Unknown]

NARRATIVE: CASE EVENT DATE: 20240624
